FAERS Safety Report 18863875 (Version 1)
Quarter: 2021Q1

REPORT INFORMATION
  Report Type: Other
  Country: ES (occurrence: ES)
  Receive Date: 20210209
  Receipt Date: 20210209
  Transmission Date: 20210420
  Serious: Yes (Other)
  Sender: FDA-Public Use
  Company Number: ES-CELLTRION INC.-2021ES001394

PATIENT

DRUGS (6)
  1. VINCRISTINA SULFATO [Suspect]
     Active Substance: VINCRISTINE SULFATE
     Indication: LEUKAEMIA
     Dosage: 2 MG/M2, QD
     Route: 042
     Dates: start: 20200523, end: 20200523
  2. CICLOFOSFAMIDA [Suspect]
     Active Substance: CYCLOPHOSPHAMIDE
     Indication: LEUKAEMIA
     Dosage: 250 MG/M2, EVERY 12 HOURS
     Route: 042
     Dates: start: 20200524, end: 20200526
  3. RITUXIMAB (UNKNOWN) [Suspect]
     Active Substance: RITUXIMAB
     Indication: LEUKAEMIA
     Dosage: 375 MG/M2, EVERY 2 DAYS
     Route: 042
     Dates: start: 20200521, end: 20200523
  4. DOXORUBICINA [Concomitant]
     Active Substance: DOXORUBICIN HYDROCHLORIDE
     Indication: LEUKAEMIA
     Dosage: 60 MICROGRAM/SQ. METER, DAILY
     Route: 042
     Dates: start: 20200524, end: 20200524
  5. METILPREDNISOLONA [Concomitant]
     Active Substance: METHYLPREDNISOLONE
     Indication: LEUKAEMIA
     Dosage: 60 UG/M2, DAILY
     Route: 042
     Dates: start: 20200521, end: 20200527
  6. METHOTREXATE (METHOTREXATE SODIUM) [Concomitant]
     Active Substance: METHOTREXATE SODIUM
     Indication: LEUKAEMIA
     Dosage: 8000 MG/M2, DAILY
     Route: 042
     Dates: start: 20200523, end: 20200523

REACTIONS (2)
  - Vocal cord paresis [Recovered/Resolved]
  - Neuropathy peripheral [Recovering/Resolving]

NARRATIVE: CASE EVENT DATE: 20200617
